FAERS Safety Report 18792486 (Version 1)
Quarter: 2021Q1

REPORT INFORMATION
  Report Type: Spontaneous
  Country: US (occurrence: US)
  Receive Date: 20210127
  Receipt Date: 20210127
  Transmission Date: 20210419
  Serious: No
  Sender: FDA-Public Use
  Company Number: US-BEH-2021127665

PATIENT
  Sex: Male

DRUGS (2)
  1. HAEGARDA [Suspect]
     Active Substance: HUMAN C1-ESTERASE INHIBITOR
     Indication: PROPHYLAXIS
  2. HAEGARDA [Suspect]
     Active Substance: HUMAN C1-ESTERASE INHIBITOR
     Indication: HEREDITARY ANGIOEDEMA
     Dosage: 6000 INTERNATIONAL UNIT, BIW (EVERY THREE DAYS)
     Route: 058
     Dates: start: 20190820

REACTIONS (3)
  - Injection site bruising [Not Recovered/Not Resolved]
  - Malabsorption from injection site [Not Recovered/Not Resolved]
  - Injection site swelling [Not Recovered/Not Resolved]
